FAERS Safety Report 13664009 (Version 2)
Quarter: 2017Q2

REPORT INFORMATION
  Report Type: Report from Study
  Country: DE (occurrence: DE)
  Receive Date: 20170619
  Receipt Date: 20170623
  Transmission Date: 20170830
  Serious: Yes (Death)
  Sender: FDA-Public Use
  Company Number: DE-PFIZER INC-2017261965

PATIENT
  Sex: Male
  Weight: 65 kg

DRUGS (5)
  1. INLYTA [Suspect]
     Active Substance: AXITINIB
     Indication: METASTATIC RENAL CELL CARCINOMA
     Dosage: 50 MG, FIRST CYCLE
     Dates: start: 20161128, end: 20161225
  2. INLYTA [Suspect]
     Active Substance: AXITINIB
     Dosage: 50 MG, THIRD CYCLE
     Dates: start: 20170306, end: 20170402
  3. INLYTA [Suspect]
     Active Substance: AXITINIB
     Dosage: 50 MG, SECOND CYCLE
     Dates: start: 20170109, end: 20170205
  4. INLYTA [Suspect]
     Active Substance: AXITINIB
     Dosage: 50 MG, FOURTH CYCLE
     Dates: start: 20170501, end: 20170528
  5. ADENURIC [Concomitant]
     Active Substance: FEBUXOSTAT
     Indication: HYPERURICAEMIA
     Dosage: UNK
     Route: 048
     Dates: end: 20170603

REACTIONS (1)
  - Pulmonary haemorrhage [Fatal]

NARRATIVE: CASE EVENT DATE: 20170603
